FAERS Safety Report 23935459 (Version 1)
Quarter: 2024Q2

REPORT INFORMATION
  Report Type: Spontaneous
  Country: PT (occurrence: PT)
  Receive Date: 20240604
  Receipt Date: 20240604
  Transmission Date: 20240715
  Serious: Yes (Other)
  Sender: FDA-Public Use
  Company Number: PT-MLMSERVICE-20240514-PI058904-00201-5

PATIENT
  Sex: Female

DRUGS (1)
  1. LIDOCAINE [Suspect]
     Active Substance: LIDOCAINE
     Indication: Epidural analgesia
     Dosage: SEQUENTIAL BLOCK
     Route: 064

REACTIONS (1)
  - Foetal distress syndrome [Unknown]
